FAERS Safety Report 20452508 (Version 1)
Quarter: 2022Q1

REPORT INFORMATION
  Report Type: Spontaneous
  Country: SI (occurrence: SI)
  Receive Date: 20220210
  Receipt Date: 20220210
  Transmission Date: 20220423
  Serious: Yes (Life-Threatening, Hospitalization)
  Sender: FDA-Public Use
  Company Number: None

PATIENT
  Age: 74 Year
  Sex: Female
  Weight: 46 kg

DRUGS (2)
  1. METHOTREXATE SODIUM [Interacting]
     Active Substance: METHOTREXATE SODIUM
     Indication: Rheumatoid arthritis
     Dosage: 5 MG, Q3W (5 MG ODMEREK: 3 TBL 1X WEEKLY)
     Route: 048
     Dates: start: 20190304, end: 20211223
  2. SULFAMETHOXAZOLE\TRIMETHOPRIM [Interacting]
     Active Substance: SULFAMETHOXAZOLE\TRIMETHOPRIM
     Indication: Urinary tract injury
     Dosage: 1 DOSAGE FORM, QID ((80/400MG2TBL/12H)
     Route: 048
     Dates: start: 20211213, end: 20211223

REACTIONS (3)
  - Duodenal ulcer haemorrhage [Recovered/Resolved]
  - Labelled drug-drug interaction issue [Recovering/Resolving]
  - Pancytopenia [Recovering/Resolving]

NARRATIVE: CASE EVENT DATE: 20211223
